FAERS Safety Report 7429728-6 (Version None)
Quarter: 2011Q2

REPORT INFORMATION
  Report Type: 
  Country: None (occurrence: None)
  Receive Date: 20110421
  Receipt Date: 20110418
  Transmission Date: 20111010
  Serious: Yes (Other)
  Sender: FDA-Public Use
  Company Number: US-PFIZER INC-2011024785

PATIENT
  Sex: Female

DRUGS (22)
  1. LEXAPRO [Concomitant]
     Indication: ANXIETY
  2. GLUCOPHAGE [Concomitant]
     Indication: TYPE 2 DIABETES MELLITUS
     Dosage: UNK
     Dates: start: 20070501, end: 20071201
  3. PERCOCET [Concomitant]
     Indication: INTERVERTEBRAL DISC DISORDER
  4. TRICOR [Concomitant]
     Indication: HYPERLIPIDAEMIA
     Dosage: UNK
     Dates: start: 20070601, end: 20071201
  5. PERCOCET [Concomitant]
     Indication: SACROILIITIS
     Dosage: UNK
     Dates: start: 20060301, end: 20101201
  6. SYNTHROID [Concomitant]
     Indication: HYPOTHYROIDISM
     Dosage: UNK
     Dates: start: 20070501
  7. XANAX [Concomitant]
     Indication: ANXIETY
     Dosage: UNK
     Dates: start: 20060101, end: 20100801
  8. AVALIDE [Concomitant]
     Indication: HYPERTENSION
     Dosage: UNK
     Dates: start: 20070501, end: 20080401
  9. METFORMIN HYDROCHLORIDE/SITAGLIPTIN [Concomitant]
     Indication: TYPE 2 DIABETES MELLITUS
     Dosage: UNK
     Dates: start: 20061101, end: 20090701
  10. SITAGLIPTIN [Concomitant]
     Indication: TYPE 2 DIABETES MELLITUS
     Dosage: UNK
     Dates: start: 20061101, end: 20071201
  11. BYETTA [Concomitant]
     Indication: TYPE 2 DIABETES MELLITUS
     Dosage: UNK
     Dates: start: 20070401, end: 20080301
  12. CLONAZEPAM [Concomitant]
     Indication: SLEEP DISORDER
     Dosage: UNK
     Dates: start: 20061201, end: 20100801
  13. PERCOCET [Concomitant]
     Indication: HEADACHE
  14. MONTELUKAST SODIUM [Concomitant]
     Indication: EMPHYSEMA
  15. CHANTIX [Suspect]
     Indication: SMOKING CESSATION THERAPY
     Dosage: UNK
     Route: 048
     Dates: start: 20071017, end: 20071022
  16. DOXEPIN [Concomitant]
     Indication: HEADACHE
     Dosage: UNK
     Dates: start: 20060101, end: 20080501
  17. DOXEPIN [Concomitant]
     Indication: INSOMNIA
  18. LEXAPRO [Concomitant]
     Indication: DEPRESSION
     Dosage: UNK
     Dates: start: 20040801, end: 20080501
  19. MONTELUKAST SODIUM [Concomitant]
     Indication: RHINITIS ALLERGIC
     Dosage: UNK
     Dates: start: 20070201, end: 20080501
  20. TARKA [Concomitant]
     Indication: HYPERTENSION
     Dosage: UNK
     Dates: start: 20070501, end: 20080101
  21. CELEBREX [Concomitant]
     Indication: PAIN
     Dosage: UNK
     Dates: start: 20070301
  22. SKELAXIN [Concomitant]
     Indication: MUSCLE RELAXANT THERAPY
     Dosage: UNK
     Dates: start: 20070501, end: 20080201

REACTIONS (10)
  - AGGRESSION [None]
  - MOOD SWINGS [None]
  - INTENTIONAL OVERDOSE [None]
  - HALLUCINATION [None]
  - AMNESIA [None]
  - MENTAL DISORDER [None]
  - DEPRESSION [None]
  - ABNORMAL BEHAVIOUR [None]
  - SUICIDE ATTEMPT [None]
  - ANXIETY [None]
